FAERS Safety Report 17242112 (Version 1)
Quarter: 2020Q1

REPORT INFORMATION
  Report Type: Spontaneous
  Country: US (occurrence: US)
  Receive Date: 20200106
  Receipt Date: 20200106
  Transmission Date: 20200409
  Serious: No
  Sender: FDA-Public Use
  Company Number: None

PATIENT
  Age: 57 Year
  Sex: Male
  Weight: 66.8 kg

DRUGS (4)
  1. CARBOPLATIN. [Suspect]
     Active Substance: CARBOPLATIN
     Indication: NEOPLASM MALIGNANT
     Dosage: ?          OTHER FREQUENCY:1 X IV INFUSION;?
     Route: 041
     Dates: start: 20191227, end: 20191227
  2. FAMOTIDINE. [Concomitant]
     Active Substance: FAMOTIDINE
     Dates: start: 20191227, end: 20191227
  3. HYDROCORTISONE SUCCINATE [Concomitant]
     Dates: start: 20191227, end: 20191227
  4. DIPHENHYDRAMINE. [Concomitant]
     Active Substance: DIPHENHYDRAMINE
     Dates: start: 20191227, end: 20191227

REACTIONS (1)
  - Wheezing [None]

NARRATIVE: CASE EVENT DATE: 20191227
